FAERS Safety Report 9775347 (Version 2)
Quarter: 2013Q4

REPORT INFORMATION
  Report Type: Spontaneous
  Country: US (occurrence: US)
  Receive Date: 20131220
  Receipt Date: 20131227
  Transmission Date: 20140711
  Serious: No
  Sender: FDA-Public Use
  Company Number: US-GILEAD-2013-0090122

PATIENT
  Sex: Female

DRUGS (5)
  1. RANEXA [Suspect]
     Indication: HEART RATE IRREGULAR
     Dosage: 1000 MG, QD
     Route: 048
     Dates: end: 201311
  2. RANEXA [Suspect]
     Dosage: 2000 MG, QD
     Route: 048
     Dates: start: 201311
  3. RANEXA [Suspect]
     Dosage: 1000 MG, QD
     Route: 048
  4. CINRYZE [Suspect]
     Indication: ANGIOEDEMA
     Dosage: 1000 IU, UNK
     Route: 042
     Dates: start: 20131213
  5. NORVASC [Concomitant]
     Indication: HYPERTENSION

REACTIONS (6)
  - Heart rate irregular [Unknown]
  - Inappropriate schedule of drug administration [Unknown]
  - Weight decreased [Unknown]
  - Nausea [Unknown]
  - Fatigue [Not Recovered/Not Resolved]
  - Decreased appetite [Not Recovered/Not Resolved]
